FAERS Safety Report 5189837-1 (Version None)
Quarter: 2006Q4

REPORT INFORMATION
  Report Type: 
  Country: None (occurrence: None)
  Receive Date: 20061218
  Receipt Date: 20061128
  Transmission Date: 20070319
  Serious: Yes (Hospitalization)
  Sender: FDA-Public Use
  Company Number: 8020450

PATIENT
  Age: 35 Year
  Sex: Male

DRUGS (20)
  1. KEPPRA [Suspect]
     Indication: CONVULSION
     Dosage: 1250 MG /D PO
     Route: 048
     Dates: start: 20051101
  2. LAMICTAL [Suspect]
     Indication: CONVULSION
     Dosage: 150 MG 3/D PO
     Route: 048
     Dates: start: 19930101
  3. NEURONTIN [Suspect]
     Indication: CONVULSION
     Dosage: 1200 MG 3/D PO
     Route: 048
     Dates: start: 19930101
  4. TESTOSTERONE [Concomitant]
  5. METHADONE HCL [Concomitant]
  6. CARAFATE [Concomitant]
  7. FAMVIR [Concomitant]
  8. ZIAGEN [Concomitant]
  9. KALETRA [Concomitant]
  10. SEROQUEL [Concomitant]
  11. CELEXA [Concomitant]
  12. FLEXERIL [Concomitant]
  13. REQUIP [Concomitant]
  14. TRAZODONE HCL [Concomitant]
  15. DEXEDRINE [Concomitant]
  16. DIFLUCAN [Concomitant]
  17. PREVACID [Concomitant]
  18. ZOFRAN [Concomitant]
  19. ERYTHRO [Concomitant]
  20. CLOBETASOL PROPIONATE [Concomitant]

REACTIONS (7)
  - DRUG DOSE OMISSION [None]
  - GRAND MAL CONVULSION [None]
  - INAPPROPRIATE SCHEDULE OF DRUG ADMINISTRATION [None]
  - INCORRECT DOSE ADMINISTERED [None]
  - INJECTION SITE ABSCESS [None]
  - INJECTION SITE CELLULITIS [None]
  - PETIT MAL EPILEPSY [None]
